FAERS Safety Report 4373663-7 (Version None)
Quarter: 2004Q1

REPORT INFORMATION
  Report Type: 
  Country: None (occurrence: None)
  Receive Date: 20040305
  Receipt Date: 20031125
  Transmission Date: 20041129
  Serious: Yes (Other)
  Sender: FDA-Public Use
  Company Number: 2003UW15654

PATIENT
  Age: 65 Year
  Sex: Female
  Weight: 54.8852 kg

DRUGS (4)
  1. CRESTOR [Suspect]
     Indication: HYPERCHOLESTEROLAEMIA
     Dosage: 10 MG QD PO
     Route: 048
  2. TUMS [Concomitant]
  3. VITAMIN D [Concomitant]
  4. ASPIRIN [Concomitant]

REACTIONS (2)
  - DRY MOUTH [None]
  - THIRST [None]
